FAERS Safety Report 5593569-5 (Version None)
Quarter: 2008Q1

REPORT INFORMATION
  Report Type: 
  Country: None (occurrence: None)
  Receive Date: 20080116
  Receipt Date: 20080114
  Transmission Date: 20080703
  Serious: Yes (Hospitalization)
  Sender: FDA-Public Use
  Company Number: DE-ROCHE-535954

PATIENT
  Age: 72 Year
  Sex: Female

DRUGS (2)
  1. BONIVA [Suspect]
     Indication: OSTEOPOROSIS
     Route: 065
     Dates: start: 20070501, end: 20070901
  2. CALCIUM GLUCONATE [Concomitant]

REACTIONS (1)
  - HEPATITIS ACUTE [None]
